FAERS Safety Report 5420811-3 (Version None)
Quarter: 2007Q3

REPORT INFORMATION
  Report Type: 
  Country: None (occurrence: None)
  Receive Date: 20070821
  Receipt Date: 20070810
  Transmission Date: 20080115
  Serious: Yes (Hospitalization)
  Sender: FDA-Public Use
  Company Number: GB-AMGEN-US234432

PATIENT
  Sex: Male

DRUGS (16)
  1. ENBREL [Suspect]
     Indication: RHEUMATOID ARTHRITIS
     Route: 058
     Dates: start: 20060705, end: 20061115
  2. METHOTREXATE [Suspect]
     Indication: RHEUMATOID ARTHRITIS
     Route: 048
     Dates: start: 19980301, end: 20061121
  3. FOLIC ACID [Concomitant]
  4. ASPIRIN [Concomitant]
     Indication: BLOOD PRESSURE INCREASED
     Route: 048
  5. ASPIRIN [Concomitant]
     Indication: MYOCARDIAL ISCHAEMIA
  6. AMLODIPINE [Concomitant]
     Indication: BLOOD PRESSURE INCREASED
     Route: 048
  7. AMLODIPINE [Concomitant]
     Indication: MYOCARDIAL ISCHAEMIA
  8. DICLOFENAC [Concomitant]
     Route: 048
  9. DOXAZOSIN MESYLATE [Concomitant]
     Indication: BLOOD PRESSURE INCREASED
     Route: 048
  10. DOXAZOSIN MESYLATE [Concomitant]
     Indication: MYOCARDIAL ISCHAEMIA
  11. SIMVASTATIN [Concomitant]
     Indication: BLOOD PRESSURE INCREASED
     Route: 048
  12. SIMVASTATIN [Concomitant]
     Indication: MYOCARDIAL ISCHAEMIA
  13. OMEPRAZOLE [Concomitant]
     Route: 048
  14. PARACETAMOL [Concomitant]
     Dosage: 1 G EVERY 1 PRN
     Route: 048
  15. LISINOPRIL [Concomitant]
     Indication: BLOOD PRESSURE INCREASED
     Route: 048
  16. LISINOPRIL [Concomitant]
     Indication: MYOCARDIAL ISCHAEMIA

REACTIONS (1)
  - PANCREATITIS [None]
